FAERS Safety Report 13676969 (Version 1)
Quarter: 2017Q2

REPORT INFORMATION
  Report Type: Spontaneous
  Country: US (occurrence: US)
  Receive Date: 20170621
  Receipt Date: 20170621
  Transmission Date: 20170830
  Serious: No
  Sender: FDA-Public Use
  Company Number: None

PATIENT
  Age: 57 Year
  Sex: Female

DRUGS (1)
  1. IBRANCE [Suspect]
     Active Substance: PALBOCICLIB

REACTIONS (5)
  - Insomnia [None]
  - Malignant neoplasm progression [None]
  - Fluid retention [None]
  - Arthralgia [None]
  - Diarrhoea [None]

NARRATIVE: CASE EVENT DATE: 20160503
